FAERS Safety Report 6657196-0 (Version None)
Quarter: 2010Q1

REPORT INFORMATION
  Report Type: 
  Country: None (occurrence: None)
  Receive Date: 20100326
  Receipt Date: 20100312
  Transmission Date: 20100710
  Serious: Yes (Death, Hospitalization)
  Sender: FDA-Public Use
  Company Number: KV200800179

PATIENT
  Age: 72 Year
  Sex: Male
  Weight: 79.5 kg

DRUGS (33)
  1. MORPHINE SULFATE [Suspect]
     Indication: PAIN
     Dosage: 60 MG, TID, ORAL
     Route: 048
     Dates: start: 20080612, end: 20080614
  2. HYOSCYAMINE (HYOSCYAMINE) [Concomitant]
  3. COLACE (DOCUSATE SODIUM)Q [Concomitant]
  4. TRILISATE (CHOLINE SALICYLATE, MAGNESIUM SALICYLATE) [Concomitant]
  5. BACTRIM DS [Concomitant]
  6. TYLENOL /00020001/ (PARACETAMOL) [Concomitant]
  7. PROVENTIL /00139501/ (SALBUTAMOL) [Concomitant]
  8. LACTULOSE [Concomitant]
  9. DILAUDID [Concomitant]
  10. COMPAZINE /00013302/ (PROCHLORPERAZINE EDISYLATE) [Concomitant]
  11. ZOFRAN /00955301/ (ONDANSETRON) [Concomitant]
  12. MORPHINE SULFATE INJ [Concomitant]
  13. AVANDAMET [Concomitant]
  14. INDAPAMIDE [Concomitant]
  15. NIFEDIPINE [Concomitant]
  16. ENALAPRIL MALEATE [Concomitant]
  17. LEVOXYL [Concomitant]
  18. HYDROCODONE W/APAP (HYDROCODONE, PARACETAMOL) [Concomitant]
  19. METFORMIN HCL [Concomitant]
  20. ONDANSETRON [Concomitant]
  21. SIMVASTATIN [Concomitant]
  22. OXYCODONE HCL ER (OXYCODONE HYDROCHLORIDE) [Concomitant]
  23. HYDROMORPHONE HCL [Concomitant]
  24. FENTANYL-100 [Concomitant]
  25. MEGESTROL ACETATE [Concomitant]
  26. DOCUSATE SODIUM (DOCUSATE SODIUM) [Concomitant]
  27. CHOLINE MAGNESIUM TRISALICYLATE (CHOLINE MAGNESIUM TRISALICYLATE) [Concomitant]
  28. LORAZEPAM [Concomitant]
  29. HALOPERIDOL [Concomitant]
  30. ATROVENT [Concomitant]
  31. OXYGEN (OXYGEN) [Concomitant]
  32. ZOCOR [Concomitant]
  33. PROCHLORPERAZINE MALEATE [Concomitant]

REACTIONS (21)
  - AGITATION [None]
  - ASTHENIA [None]
  - BLADDER CANCER [None]
  - CARDIO-RESPIRATORY ARREST [None]
  - DEPRESSED LEVEL OF CONSCIOUSNESS [None]
  - DISORIENTATION [None]
  - DYSKINESIA [None]
  - DYSPHAGIA [None]
  - HYPERGLYCAEMIA [None]
  - HYPERHIDROSIS [None]
  - HYPERSOMNIA [None]
  - MEMORY IMPAIRMENT [None]
  - MENTAL STATUS CHANGES [None]
  - OVERDOSE [None]
  - PNEUMONIA ASPIRATION [None]
  - PRODUCT QUALITY ISSUE [None]
  - RESTLESSNESS [None]
  - SINUS TACHYCARDIA [None]
  - UNRESPONSIVE TO STIMULI [None]
  - URINARY TRACT INFECTION [None]
  - WRONG TECHNIQUE IN DRUG USAGE PROCESS [None]
